FAERS Safety Report 9772191 (Version 4)
Quarter: 2014Q2

REPORT INFORMATION
  Report Type: Spontaneous
  Country: US (occurrence: US)
  Receive Date: 20131219
  Receipt Date: 20140422
  Transmission Date: 20141212
  Serious: Yes (Hospitalization, Other)
  Sender: FDA-Public Use
  Company Number: US-BAYER-2013-153800

PATIENT
  Age: 25 Year
  Sex: Female
  Weight: 64.4 kg

DRUGS (4)
  1. MIRENA [Suspect]
     Indication: CONTRACEPTION
     Dosage: 20 MCG/24HR, CONT
     Route: 015
     Dates: start: 20100402, end: 20100527
  2. MIRENA [Suspect]
     Indication: CONTRACEPTION
  3. AUGMENTIN [Concomitant]
  4. METHERGINE [Concomitant]

REACTIONS (10)
  - Uterine perforation [None]
  - Injury [None]
  - Discomfort [None]
  - Medical device pain [None]
  - Uterine injury [None]
  - Pregnancy with contraceptive device [None]
  - Abortion spontaneous [None]
  - Depression [None]
  - Anxiety [None]
  - Drug ineffective [None]
